FAERS Safety Report 7248155-8 (Version None)
Quarter: 2011Q1

REPORT INFORMATION
  Report Type: 
  Country: None (occurrence: None)
  Receive Date: 20110127
  Receipt Date: 20101213
  Transmission Date: 20110831
  Serious: Yes (Other)
  Sender: FDA-Public Use
  Company Number: CA-BAYER-2010-000829

PATIENT
  Sex: Male

DRUGS (4)
  1. ACETAMINOPHEN [Concomitant]
     Indication: PREMEDICATION
     Dosage: 1000 MG, BID
     Route: 048
  2. INTERFERON BETA-1B [Suspect]
     Dosage: 8 MIU, QOD
     Route: 058
  3. INTERFERON BETA-1B [Suspect]
     Indication: MULTIPLE SCLEROSIS
     Dosage: 2 MIU, QOD
     Route: 058
     Dates: start: 20101117
  4. VITAMIN D [Concomitant]

REACTIONS (11)
  - MYALGIA [None]
  - BACK PAIN [None]
  - INJECTION SITE ERYTHEMA [None]
  - INJECTION SITE PAIN [None]
  - HEADACHE [None]
  - PARAESTHESIA [None]
  - CHILLS [None]
  - ARTHRALGIA [None]
  - PAIN IN EXTREMITY [None]
  - MUSCLE SPASMS [None]
  - PAIN [None]
